FAERS Safety Report 8802259 (Version 1)
Quarter: 2012Q4

REPORT INFORMATION
  Report Type: 
  Country: US (occurrence: US)
  Receive Date: 20120921
  Receipt Date: 20120921
  Transmission Date: 20130627
  Serious: No
  Sender: FDA-Public Use
  Company Number: US-009507513-1209USA000935

PATIENT
  Age: 39 Year
  Sex: Female

DRUGS (1)
  1. EMEND FOR INJECTION [Suspect]
     Dosage: 150 mg, UNK
     Route: 042
     Dates: start: 201208

REACTIONS (4)
  - Infusion site irritation [Recovered/Resolved]
  - Infusion site erythema [Recovered/Resolved]
  - Infusion site pain [Recovered/Resolved]
  - Infusion site pruritus [Recovered/Resolved]
